FAERS Safety Report 9138274 (Version 1)
Quarter: 2013Q1

REPORT INFORMATION
  Report Type: Spontaneous
  Country: SE (occurrence: SE)
  Receive Date: 20130305
  Receipt Date: 20130305
  Transmission Date: 20140127
  Serious: Yes (Hospitalization)
  Sender: FDA-Public Use
  Company Number: SE-ABBOTT-13X-150-1057930-00

PATIENT
  Age: 18 Year
  Sex: Male

DRUGS (1)
  1. ERGENYL [Suspect]
     Indication: HEADACHE
     Route: 048
     Dates: start: 20121201, end: 20121220

REACTIONS (2)
  - Dermatitis [Not Recovered/Not Resolved]
  - Transaminases increased [Not Recovered/Not Resolved]
